FAERS Safety Report 16868006 (Version 1)
Quarter: 2019Q3

REPORT INFORMATION
  Report Type: Spontaneous
  Country: IN (occurrence: IN)
  Receive Date: 20190930
  Receipt Date: 20190930
  Transmission Date: 20191005
  Serious: Yes (Other)
  Sender: FDA-Public Use
  Company Number: IN-PFIZER INC-2018296139

PATIENT
  Age: 48 Year
  Sex: Male
  Weight: 81.3 kg

DRUGS (1)
  1. CRIZALK [Suspect]
     Active Substance: CRIZOTINIB
     Indication: NON-SMALL CELL LUNG CANCER METASTATIC
     Dosage: 250 MG, 2X/DAY
     Route: 048
     Dates: start: 20150902

REACTIONS (11)
  - Pyrexia [Recovered/Resolved]
  - Weight increased [Unknown]
  - Chest pain [Unknown]
  - Chest discomfort [Unknown]
  - Renal cyst [Unknown]
  - Cough [Recovering/Resolving]
  - Pain [Recovered/Resolved]
  - Aspartate aminotransferase increased [Unknown]
  - Alanine aminotransferase increased [Unknown]
  - Pneumonia [Unknown]
  - Hepatomegaly [Unknown]
